FAERS Safety Report 10247055 (Version 2)
Quarter: 2014Q2

REPORT INFORMATION
  Report Type: Spontaneous
  Country: JP (occurrence: JP)
  Receive Date: 20140619
  Receipt Date: 20140619
  Transmission Date: 20141212
  Serious: Yes (Other)
  Sender: FDA-Public Use
  Company Number: JP-B.I. PHARMACEUTICALS,INC./RIDGEFIELD-2014-BI-24089NB

PATIENT
  Age: 8 Decade
  Sex: Male

DRUGS (3)
  1. MICARDIS [Suspect]
     Indication: HYPERTENSION
     Dosage: 40 MG
     Route: 048
     Dates: start: 2005, end: 201405
  2. UNKNOWN DRUG [Concomitant]
     Indication: ANAL FISTULA
     Route: 065
  3. UNKNOWN DRUG [Concomitant]
     Indication: PROSTATE CANCER
     Route: 065

REACTIONS (3)
  - Rhabdomyolysis [Unknown]
  - Plasma cell myeloma [Unknown]
  - Blood creatine phosphokinase increased [Not Recovered/Not Resolved]
